FAERS Safety Report 10170376 (Version 2)
Quarter: 2014Q2

REPORT INFORMATION
  Report Type: Spontaneous
  Country: US (occurrence: US)
  Receive Date: 20140513
  Receipt Date: 20140526
  Transmission Date: 20141212
  Serious: No
  Sender: FDA-Public Use
  Company Number: US-BRISTOL-MYERS SQUIBB COMPANY-20686481

PATIENT
  Age: 60 Year
  Sex: Male
  Weight: 106.57 kg

DRUGS (1)
  1. BYDUREON [Suspect]
     Indication: TYPE 2 DIABETES MELLITUS
     Dosage: START DATE: 4 OR 5 MONTHS
     Route: 058

REACTIONS (2)
  - Drug administration error [Unknown]
  - Underdose [Unknown]
